FAERS Safety Report 12969138 (Version 3)
Quarter: 2017Q1

REPORT INFORMATION
  Report Type: Spontaneous
  Country: AU (occurrence: AU)
  Receive Date: 20161123
  Receipt Date: 20170106
  Transmission Date: 20170428
  Serious: Yes (Disabling, Other)
  Sender: FDA-Public Use
  Company Number: AU-INCYTE CORPORATION-2016IN002293

PATIENT
  Age: 59 Year
  Sex: Female
  Weight: 60 kg

DRUGS (3)
  1. JAKAVI [Suspect]
     Active Substance: RUXOLITINIB
     Indication: MYELOFIBROSIS
     Dosage: 5 MG, BID
     Route: 065
     Dates: start: 20160306, end: 20160425
  2. JAKAVI [Suspect]
     Active Substance: RUXOLITINIB
     Dosage: 10 MG, BID
     Route: 065
     Dates: start: 20160426, end: 20161123
  3. JAKAVI [Suspect]
     Active Substance: RUXOLITINIB
     Dosage: 15 MG, BID
     Route: 065

REACTIONS (20)
  - Leukocytosis [Unknown]
  - Reticulin increased [Unknown]
  - Gamma-glutamyltransferase increased [Unknown]
  - White blood cell count decreased [Unknown]
  - Blast cell count increased [Unknown]
  - Blood alkaline phosphatase increased [Unknown]
  - Red blood cell count decreased [Unknown]
  - Acute febrile neutrophilic dermatosis [Recovering/Resolving]
  - Platelet count increased [Recovering/Resolving]
  - Protein total decreased [Unknown]
  - Oedema peripheral [Unknown]
  - Neutrophil count increased [Not Recovered/Not Resolved]
  - Muscle atrophy [Unknown]
  - Haematocrit decreased [Unknown]
  - Blood potassium decreased [Unknown]
  - Haemoglobin decreased [Unknown]
  - Nodular rash [Unknown]
  - Blood bilirubin increased [Unknown]
  - Blood albumin decreased [Unknown]
  - Red cell distribution width increased [Unknown]

NARRATIVE: CASE EVENT DATE: 20160307
